FAERS Safety Report 20978465 (Version 3)
Quarter: 2022Q3

REPORT INFORMATION
  Report Type: Spontaneous
  Country: US (occurrence: US)
  Receive Date: 20220618
  Receipt Date: 20220923
  Transmission Date: 20221026
  Serious: Yes (Other)
  Sender: FDA-Public Use
  Company Number: US-SA-SAC20220615000585

PATIENT
  Sex: Female
  Weight: 73.028 kg

DRUGS (17)
  1. DUPIXENT [Suspect]
     Active Substance: DUPILUMAB
     Indication: Asthma
     Dosage: 300 MG, QOW
     Route: 058
     Dates: start: 2019
  2. VITAMINS NOS [Concomitant]
     Active Substance: VITAMINS
     Dosage: QD
  3. TRAMADOL HCL [Concomitant]
     Active Substance: TRAMADOL HYDROCHLORIDE
  4. VENTOLIN HFA [Concomitant]
     Active Substance: ALBUTEROL SULFATE
  5. VITAMIN C [Concomitant]
     Active Substance: ASCORBIC ACID
  6. VITAMIN D3 [Concomitant]
     Active Substance: CHOLECALCIFEROL
  7. ZINC [Concomitant]
     Active Substance: ZINC
  8. LEVOTHYROXINE SODIUM [Concomitant]
     Active Substance: LEVOTHYROXINE SODIUM
  9. ROSUVASTATIN CALCIUM [Concomitant]
     Active Substance: ROSUVASTATIN CALCIUM
  10. LOSARTAN POTASSIUM [Concomitant]
     Active Substance: LOSARTAN POTASSIUM
  11. MONTELUKAST SODIUM [Concomitant]
     Active Substance: MONTELUKAST SODIUM
  12. FLUCONAZOLE [Concomitant]
     Active Substance: FLUCONAZOLE
  13. LINEZOLID [Concomitant]
     Active Substance: LINEZOLID
  14. EPINEPHRINE [Concomitant]
     Active Substance: EPINEPHRINE
  15. PREDNISONE [Concomitant]
     Active Substance: PREDNISONE
  16. AMOXICILLIN\CLAVULANATE POTASSIUM [Concomitant]
     Active Substance: AMOXICILLIN\CLAVULANATE POTASSIUM
  17. CEPHALEXIN [Concomitant]
     Active Substance: CEPHALEXIN

REACTIONS (4)
  - West Nile viral infection [Unknown]
  - Pain [Unknown]
  - Urinary tract infection [Unknown]
  - Spinal operation [Unknown]

NARRATIVE: CASE EVENT DATE: 20210101
